FAERS Safety Report 19825921 (Version 1)
Quarter: 2021Q3

REPORT INFORMATION
  Report Type: Spontaneous
  Country: CN (occurrence: CN)
  Receive Date: 20210914
  Receipt Date: 20210914
  Transmission Date: 20211014
  Serious: Yes (Hospitalization, Other)
  Sender: FDA-Public Use
  Company Number: CN-MICRO LABS LIMITED-ML2021-02133

PATIENT
  Age: 49 Year
  Sex: Male

DRUGS (4)
  1. SODIUM CHLORIDE. [Suspect]
     Active Substance: SODIUM CHLORIDE
  2. MOXIFLOXACIN. [Suspect]
     Active Substance: MOXIFLOXACIN
     Route: 042
  3. TRANEXAMIC ACID (ANDA 206713) [Suspect]
     Active Substance: TRANEXAMIC ACID
     Indication: PULMONARY HAEMORRHAGE
     Route: 042
  4. CARBAZOCHROME SODIUM SULPHONATE [Suspect]
     Active Substance: CARBAZOCHROME SODIUM SULFONATE
     Route: 042

REACTIONS (1)
  - Drug ineffective [Unknown]
